FAERS Safety Report 16167911 (Version 5)
Quarter: 2025Q4

REPORT INFORMATION
  Report Type: Report from Study
  Country: JP (occurrence: None)
  Receive Date: 20190408
  Receipt Date: 20251222
  Transmission Date: 20260117
  Serious: Yes (Other)
  Sender: CHIESI
  Company Number: JP-AEGERION PHARMACEUTICALS-AEGR-2018-00023

PATIENT
  Age: 33 Year
  Sex: Male

DRUGS (14)
  1. LOMITAPIDE [Suspect]
     Active Substance: LOMITAPIDE
     Indication: Type IIa hyperlipidaemia
     Dosage: 5 MILLIGRAM, QD
     Route: 061
     Dates: start: 20170513, end: 20170609
  2. LOMITAPIDE [Suspect]
     Active Substance: LOMITAPIDE
     Dosage: 10 MILLIGRAM, QD
     Route: 061
     Dates: start: 20170610
  3. LOMITAPIDE [Suspect]
     Active Substance: LOMITAPIDE
     Dosage: 15 MILLIGRAM, QD
     Route: 061
     Dates: start: 20170624
  4. LOMITAPIDE [Suspect]
     Active Substance: LOMITAPIDE
     Dosage: 20 MILLIGRAM, QD
     Route: 061
     Dates: start: 20171223, end: 20180310
  5. LOMITAPIDE [Suspect]
     Active Substance: LOMITAPIDE
     Dosage: 15 MILLIGRAM, QD
     Route: 061
     Dates: start: 20240524
  6. SINLESTAL [Concomitant]
     Indication: Product used for unknown indication
     Dosage: 500 MILLIGRAM, BID
     Route: 061
  7. LIPITOR [Concomitant]
     Active Substance: ATORVASTATIN CALCIUM
     Indication: Product used for unknown indication
     Dosage: 20 MILLIGRAM, QD
     Route: 061
  8. AMLODIPINE [Concomitant]
     Active Substance: AMLODIPINE BESYLATE
     Indication: Hypertension
     Dosage: 2.5 MILLIGRAM, QD
     Route: 061
  9. ASPIRIN [Concomitant]
     Active Substance: ASPIRIN
     Indication: Cerebral artery stenosis
     Dosage: 100 MILLIGRAM, QD
     Route: 061
  10. WARFARIN [Concomitant]
     Active Substance: WARFARIN
     Indication: Cerebral artery stenosis
     Dosage: 4 MILLIGRAM, QD
     Route: 061
  11. BISOPROLOL FUMARATE [Concomitant]
     Active Substance: BISOPROLOL FUMARATE
     Indication: Hypertension
     Dosage: 2.5 MILLIGRAM, BID
     Route: 061
  12. CINAL [Concomitant]
     Indication: Product used for unknown indication
     Dosage: 200 MILLIGRAM, BID
     Route: 061
  13. ATORVASTATIN CALCIUM TRIHYDRATE [Concomitant]
     Active Substance: ATORVASTATIN CALCIUM TRIHYDRATE
     Indication: Hypercholesterolaemia
     Dosage: 10 MILLIGRAM, QD
     Route: 061
     Dates: start: 20191102
  14. EVKEEZA [Concomitant]
     Active Substance: EVINACUMAB-DGNB
     Indication: Product used for unknown indication
     Dosage: 1065 MILLIGRAM, QM
     Dates: start: 20240622

REACTIONS (3)
  - Eosinophilia [Recovered/Resolved]
  - Hepatic function abnormal [Recovered/Resolved]
  - Diarrhoea [Recovered/Resolved]

NARRATIVE: CASE EVENT DATE: 20180201
